FAERS Safety Report 11289611 (Version 1)
Quarter: 2015Q3

REPORT INFORMATION
  Report Type: Spontaneous
  Country: US (occurrence: US)
  Receive Date: 20150721
  Receipt Date: 20150721
  Transmission Date: 20151125
  Serious: No
  Sender: FDA-Public Use
  Company Number: CHPA2015US008631

PATIENT
  Age: 47 Year
  Sex: Male

DRUGS (4)
  1. VOLTAREN [Suspect]
     Active Substance: DICLOFENAC SODIUM
     Indication: ARTHRALGIA
  2. EPSOM SALT [Concomitant]
     Active Substance: MAGNESIUM SULFATE
     Indication: PRODUCT USED FOR UNKNOWN INDICATION
     Route: 065
  3. VOLTAREN [Suspect]
     Active Substance: DICLOFENAC SODIUM
     Indication: JOINT INJURY
     Dosage: 4 G, QID
     Route: 061
     Dates: start: 201507, end: 20150712
  4. VOLTAREN [Suspect]
     Active Substance: DICLOFENAC SODIUM
     Indication: JOINT SWELLING

REACTIONS (11)
  - Burning sensation [Recovering/Resolving]
  - Erythema [Not Recovered/Not Resolved]
  - Paraesthesia [Recovering/Resolving]
  - Wound secretion [Not Recovered/Not Resolved]
  - Product use issue [Unknown]
  - Feeling hot [Recovered/Resolved]
  - Palpitations [Recovered/Resolved]
  - Therapeutic response unexpected [Unknown]
  - Disorientation [Recovered/Resolved]
  - Hypoaesthesia [Not Recovered/Not Resolved]
  - Wound [Not Recovered/Not Resolved]

NARRATIVE: CASE EVENT DATE: 201507
